FAERS Safety Report 23363971 (Version 1)
Quarter: 2024Q1

REPORT INFORMATION
  Report Type: Spontaneous
  Country: US (occurrence: US)
  Receive Date: 20240104
  Receipt Date: 20240104
  Transmission Date: 20240409
  Serious: Yes (Other)
  Sender: FDA-Public Use
  Company Number: US-AMGEN-USASP2023233014

PATIENT
  Age: 67 Year
  Sex: Male

DRUGS (1)
  1. ADALIMUMAB [Suspect]
     Active Substance: ADALIMUMAB\ISOPROPYL ALCOHOL
     Indication: Hidradenitis
     Dosage: WEEKLY
     Route: 065

REACTIONS (6)
  - Acute kidney injury [Recovering/Resolving]
  - Pneumonia legionella [Recovering/Resolving]
  - Induration [Recovering/Resolving]
  - Hyponatraemia [Recovering/Resolving]
  - Metabolic acidosis [Recovering/Resolving]
  - Hepatic enzyme increased [Recovering/Resolving]
